FAERS Safety Report 10047297 (Version 1)
Quarter: 2014Q1

REPORT INFORMATION
  Report Type: Spontaneous
  Country: US (occurrence: US)
  Receive Date: 20140331
  Receipt Date: 20140331
  Transmission Date: 20141002
  Serious: No
  Sender: FDA-Public Use
  Company Number: US-MYLANLABS-2013S1028490

PATIENT
  Age: 52 Year
  Sex: Female
  Weight: 65.77 kg

DRUGS (5)
  1. FENTANYL TRANSDERMAL SYSTEM [Suspect]
     Indication: BACK PAIN
     Dosage: CHANGED Q72H
     Route: 062
     Dates: start: 201306
  2. OXYCODONE [Concomitant]
     Indication: BACK PAIN
     Dosage: 5MG/325MG PRN
     Route: 048
  3. NEURONTIN [Concomitant]
     Indication: PAIN
     Route: 048
  4. METHOCARBAMOL [Concomitant]
     Indication: MUSCLE SPASMS
     Dates: start: 201306, end: 201310
  5. FLEXERIL [Concomitant]
     Indication: MUSCLE SPASMS
     Dates: start: 201310

REACTIONS (5)
  - Pain [Recovered/Resolved]
  - Application site erythema [Recovered/Resolved]
  - Body temperature increased [Recovered/Resolved]
  - Chills [Recovered/Resolved]
  - Inappropriate schedule of drug administration [Recovered/Resolved]
